FAERS Safety Report 11199288 (Version 1)
Quarter: 2015Q2

REPORT INFORMATION
  Report Type: Spontaneous
  Country: US (occurrence: None)
  Receive Date: 20150617
  Receipt Date: 20150617
  Transmission Date: 20150821
  Serious: Yes (Death, Hospitalization)
  Sender: FDA-Public Use
  Company Number: None

PATIENT
  Age: 88 Year
  Sex: Male
  Weight: 90.9 kg

DRUGS (1)
  1. AMOXICILLIN CLAVULANATE [Suspect]
     Active Substance: AMOXICILLIN\CLAVULANIC ACID
     Indication: OVERGROWTH BACTERIAL
     Route: 048
     Dates: start: 20100419, end: 20100429

REACTIONS (1)
  - Jaundice [None]

NARRATIVE: CASE EVENT DATE: 20100510
